FAERS Safety Report 15294852 (Version 1)
Quarter: 2018Q3

REPORT INFORMATION
  Report Type: Spontaneous
  Country: US (occurrence: US)
  Receive Date: 20180820
  Receipt Date: 20180820
  Transmission Date: 20181010
  Serious: Yes (Other)
  Sender: FDA-Public Use
  Company Number: US-TEVA-2018-US-944238

PATIENT
  Age: 88 Year
  Sex: Female

DRUGS (1)
  1. CIPROFLOXACIN. [Suspect]
     Active Substance: CIPROFLOXACIN
     Indication: URINARY TRACT INFECTION
     Route: 065
     Dates: start: 2008, end: 2015

REACTIONS (7)
  - Musculoskeletal pain [Unknown]
  - Tendon rupture [Unknown]
  - Tenoplasty [Unknown]
  - Cardiac disorder [Unknown]
  - Upper limb fracture [Unknown]
  - Arthritis [Unknown]
  - Tendonitis [Unknown]

NARRATIVE: CASE EVENT DATE: 2008
